FAERS Safety Report 4322756-9 (Version None)
Quarter: 2004Q1

REPORT INFORMATION
  Report Type: 
  Country: None (occurrence: None)
  Receive Date: 20040324
  Receipt Date: 20040311
  Transmission Date: 20041129
  Serious: Yes (Hospitalization, Other)
  Sender: FDA-Public Use
  Company Number: GB-GLAXOSMITHKLINE-B0326616A

PATIENT
  Age: 41 Year
  Sex: Male

DRUGS (5)
  1. LAMOTRIGINE [Suspect]
     Indication: EPILEPSY
     Route: 048
     Dates: start: 19980101, end: 20040310
  2. KEPPRA [Suspect]
     Route: 065
     Dates: start: 20031021
  3. TEGRETOL [Concomitant]
     Route: 065
     Dates: start: 20011206
  4. TEGRETOL [Concomitant]
     Route: 065
  5. LOCOID [Concomitant]
     Route: 061
     Dates: start: 20030415

REACTIONS (2)
  - DRUG INTERACTION [None]
  - RASH [None]
